FAERS Safety Report 4472821-0 (Version None)
Quarter: 2004Q4

REPORT INFORMATION
  Report Type: 
  Country: None (occurrence: None)
  Receive Date: 20041012
  Receipt Date: 20040923
  Transmission Date: 20050328
  Serious: No
  Sender: FDA-Public Use
  Company Number: 2004GB01975

PATIENT
  Age: 83 Year
  Sex: Male
  Weight: 76 kg

DRUGS (5)
  1. CRESTOR [Suspect]
     Indication: MYOCARDIAL ISCHAEMIA
     Dosage: 10 MG DAILY PO
     Route: 048
     Dates: start: 20040423, end: 20040426
  2. ATORVASTATIN CALCIUM [Concomitant]
  3. ASPIRIN [Concomitant]
  4. RAMIPRIL [Concomitant]
  5. NIFEDIPINE [Concomitant]

REACTIONS (4)
  - BLISTER [None]
  - BURNING SENSATION [None]
  - CELLULITIS [None]
  - MYALGIA [None]
